FAERS Safety Report 16945607 (Version 1)
Quarter: 2019Q4

REPORT INFORMATION
  Report Type: Report from Study
  Country: None (occurrence: IT)
  Receive Date: 20191022
  Receipt Date: 20191022
  Transmission Date: 20200122
  Serious: Yes (Other)
  Sender: FDA-Public Use
  Company Number: IT-ABBVIE-19K-083-2971789-00

PATIENT
  Age: 55 Year
  Sex: Male

DRUGS (1)
  1. MAVIRET [Suspect]
     Active Substance: GLECAPREVIR\PIBRENTASVIR
     Indication: HEPATITIS C
     Route: 048
     Dates: start: 20190726

REACTIONS (3)
  - Renal colic [Recovering/Resolving]
  - Ureterolithiasis [Recovering/Resolving]
  - Calculus bladder [Recovering/Resolving]

NARRATIVE: CASE EVENT DATE: 20190913
